FAERS Safety Report 13674870 (Version 1)
Quarter: 2017Q2

REPORT INFORMATION
  Report Type: Spontaneous
  Country: US (occurrence: US)
  Receive Date: 20170621
  Receipt Date: 20170621
  Transmission Date: 20170830
  Serious: Yes (Life-Threatening, Other)
  Sender: FDA-Public Use
  Company Number: PHHY2017US086725

PATIENT
  Age: 31 Year
  Sex: Male

DRUGS (1)
  1. FILGRASTIM [Suspect]
     Active Substance: FILGRASTIM
     Indication: STEM CELL TRANSPLANT
     Dosage: 480 UG, BID
     Route: 058

REACTIONS (3)
  - Anuria [Unknown]
  - Renal injury [Unknown]
  - Glomerulonephritis rapidly progressive [Unknown]
